FAERS Safety Report 15702704 (Version 1)
Quarter: 2018Q4

REPORT INFORMATION
  Report Type: Spontaneous
  Country: None (occurrence: GB)
  Receive Date: 20181210
  Receipt Date: 20181210
  Transmission Date: 20190205
  Serious: Yes (Hospitalization, Other)
  Sender: FDA-Public Use
  Company Number: GB-ORION CORPORATION ORION PHARMA-18_00004946

PATIENT
  Age: 75 Year
  Sex: Male

DRUGS (5)
  1. PRAMIPEXOLE. [Suspect]
     Active Substance: PRAMIPEXOLE
     Indication: PARKINSON^S DISEASE
     Dosage: MODIFIED RELEASE (DOPAMINE AGONIST)
     Route: 065
  2. STALEVO [Suspect]
     Active Substance: CARBIDOPA\ENTACAPONE\LEVODOPA
     Indication: PARKINSON^S DISEASE
     Dosage: STRENGTH: 100/25/200 MG
     Route: 065
  3. RASAGILINE. [Suspect]
     Active Substance: RASAGILINE
     Indication: PARKINSON^S DISEASE
     Route: 065
  4. STALEVO [Suspect]
     Active Substance: CARBIDOPA\ENTACAPONE\LEVODOPA
     Indication: SALIVARY HYPERSECRETION
  5. ATROPINE. [Suspect]
     Active Substance: ATROPINE
     Indication: DROOLING
     Dosage: STRENGTH: 10MG/ML
     Route: 060

REACTIONS (15)
  - Delirium [Recovered/Resolved]
  - Confusional state [Recovered/Resolved]
  - Gait disturbance [Recovered/Resolved]
  - Psychotic disorder [Recovered/Resolved]
  - Drug interaction [Recovered/Resolved]
  - Parkinson^s disease [Recovered/Resolved]
  - Road traffic accident [Recovered/Resolved]
  - Fall [Recovered/Resolved]
  - Quality of life decreased [Recovered/Resolved]
  - Aggression [Recovered/Resolved]
  - Hallucination, auditory [Recovered/Resolved]
  - Paranoia [Recovered/Resolved]
  - Dysarthria [Recovered/Resolved]
  - Drooling [Recovered/Resolved]
  - Hallucination, visual [Recovered/Resolved]
